FAERS Safety Report 8974153 (Version 2)
Quarter: 2013Q2

REPORT INFORMATION
  Report Type: Spontaneous
  Country: CN (occurrence: None)
  Receive Date: 20121211
  Receipt Date: 20130607
  Transmission Date: 20140414
  Serious: Yes (Hospitalization)
  Sender: FDA-Public Use
  Company Number: CN-JNJFOC-20121200580

PATIENT
  Age: 50 Year
  Sex: Male

DRUGS (3)
  1. DACOGEN [Suspect]
     Indication: CHRONIC MYELOID LEUKAEMIA
     Route: 041
     Dates: start: 20121117, end: 20121121
  2. 17-AAG (INVESTIGATIONAL DRUG) UNSPECIFIED [Suspect]
     Indication: CHRONIC MYELOID LEUKAEMIA
  3. VITAMIN C [Concomitant]

REACTIONS (4)
  - Phlebitis [None]
  - Drug effect decreased [None]
  - Ultrasound scan abnormal [None]
  - Laboratory test abnormal [None]
